FAERS Safety Report 24317575 (Version 3)
Quarter: 2024Q4

REPORT INFORMATION
  Report Type: Report from Study
  Country: US (occurrence: US)
  Receive Date: 20240913
  Receipt Date: 20241107
  Transmission Date: 20250114
  Serious: Yes (Other)
  Sender: BAYER HEALTHCARE PHARMACEUTICALS INC.
  Company Number: US-BAYER-2024A129066

PATIENT
  Age: 65 Year
  Sex: Male

DRUGS (1)
  1. NUBEQA [Suspect]
     Active Substance: DAROLUTAMIDE
     Indication: Prostate cancer
     Dosage: 600 MG, BID
     Route: 048
     Dates: start: 20240715

REACTIONS (4)
  - Renal disorder [Unknown]
  - Dysuria [Recovered/Resolved]
  - Nausea [Not Recovered/Not Resolved]
  - Fatigue [Unknown]
